FAERS Safety Report 8310921-5 (Version None)
Quarter: 2012Q2

REPORT INFORMATION
  Report Type: 
  Country: None (occurrence: None)
  Receive Date: 20120425
  Receipt Date: 20120419
  Transmission Date: 20120825
  Serious: No
  Sender: FDA-Public Use
  Company Number: US-BIOGENIDEC-2012BI012361

PATIENT
  Sex: Male

DRUGS (2)
  1. METHYLPREDNISOLONE [Concomitant]
     Dates: end: 20120419
  2. TYSABRI [Suspect]
     Indication: MULTIPLE SCLEROSIS
     Route: 042
     Dates: start: 20120321

REACTIONS (2)
  - HICCUPS [None]
  - RASH PRURITIC [None]
